FAERS Safety Report 5774318-4 (Version None)
Quarter: 2008Q2

REPORT INFORMATION
  Report Type: 
  Country: None (occurrence: None)
  Receive Date: 20080616
  Receipt Date: 20080611
  Transmission Date: 20081010
  Serious: Yes (Life-Threatening)
  Sender: FDA-Public Use
  Company Number: FR-RB-001869-08

PATIENT

DRUGS (3)
  1. SUBUTEX [Suspect]
     Indication: DRUG THERAPY
     Dosage: SUBUTEX TAKEN BY PO ROUTE, INJECTION, AND SPLITTING DOSES.
  2. LOVENOX [Concomitant]
     Indication: DRUG USE FOR UNKNOWN INDICATION
  3. AMOXICILLIN [Concomitant]
     Indication: DRUG USE FOR UNKNOWN INDICATION

REACTIONS (4)
  - INJECTION SITE ABSCESS [None]
  - INJECTION SITE PHLEBITIS [None]
  - OFF LABEL USE [None]
  - WRONG TECHNIQUE IN DRUG USAGE PROCESS [None]
